FAERS Safety Report 17417597 (Version 8)
Quarter: 2021Q4

REPORT INFORMATION
  Report Type: Report from Study
  Country: US (occurrence: US)
  Receive Date: 20200214
  Receipt Date: 20211028
  Transmission Date: 20220303
  Serious: Yes (Other)
  Sender: FDA-Public Use
  Company Number: US-NOVARTISPH-NVSC2019US087243

PATIENT
  Age: 64 Year
  Sex: Female
  Weight: 59.87 kg

DRUGS (13)
  1. COSENTYX [Suspect]
     Active Substance: SECUKINUMAB
     Indication: Psoriasis
     Dosage: 300 MG, QMO
     Route: 065
     Dates: start: 20181003
  2. COSENTYX [Suspect]
     Active Substance: SECUKINUMAB
     Dosage: 300 MG, QMO
     Route: 065
     Dates: start: 20190826
  3. COSENTYX [Suspect]
     Active Substance: SECUKINUMAB
     Dosage: 300 MG, QMO
     Route: 065
     Dates: start: 20181003, end: 20200312
  4. AMOXICILLIN [Interacting]
     Active Substance: AMOXICILLIN
     Indication: Tooth abscess
     Dosage: UNK
     Route: 065
     Dates: start: 20200314, end: 20200324
  5. AUGMENTIN [Interacting]
     Active Substance: AMOXICILLIN\CLAVULANATE POTASSIUM
     Indication: Osteomyelitis
     Dosage: UNK
     Route: 065
     Dates: start: 20200729, end: 20200811
  6. FLAGYL [Interacting]
     Active Substance: METRONIDAZOLE\METRONIDAZOLE HYDROCHLORIDE
     Indication: Osteomyelitis
     Dosage: UNK
     Route: 065
     Dates: start: 20200729, end: 20200811
  7. ERTAPENEM. [Interacting]
     Active Substance: ERTAPENEM SODIUM
     Indication: Osteomyelitis
     Dosage: 1 G, QD
     Route: 042
     Dates: start: 20200821, end: 20201001
  8. CALCIPOTRIENE [Concomitant]
     Active Substance: CALCIPOTRIENE
     Indication: Product used for unknown indication
     Dosage: UNK
     Route: 065
  9. IBUPROFEN [Concomitant]
     Active Substance: IBUPROFEN
     Indication: Pain
     Dosage: 600 MG, TID
     Route: 065
  10. IBUPROFEN [Concomitant]
     Active Substance: IBUPROFEN
     Indication: Inflammation
  11. IBUPROFEN [Concomitant]
     Active Substance: IBUPROFEN
     Indication: Swelling
  12. BETAMETHASONE DIPROPIONATE [Concomitant]
     Active Substance: BETAMETHASONE DIPROPIONATE
     Indication: Psoriasis
     Dosage: UNK
     Route: 065
  13. DESONIDE [Concomitant]
     Active Substance: DESONIDE
     Indication: Psoriasis
     Dosage: UNK
     Route: 065

REACTIONS (9)
  - Osteonecrosis of jaw [Unknown]
  - Hypoaesthesia oral [Unknown]
  - Swelling face [Unknown]
  - Tooth abscess [Recovered/Resolved]
  - Osteomyelitis [Recovered/Resolved]
  - Pain in jaw [Unknown]
  - Sinusitis [Unknown]
  - Bacterial infection [Unknown]
  - Neisseria test positive [Unknown]

NARRATIVE: CASE EVENT DATE: 20190901
